FAERS Safety Report 6135813-1 (Version None)
Quarter: 2009Q1

REPORT INFORMATION
  Report Type: 
  Country: None (occurrence: None)
  Receive Date: 20090327
  Receipt Date: 20090319
  Transmission Date: 20090719
  Serious: Yes (Other)
  Sender: FDA-Public Use
  Company Number: JP-B.I. PHARMACEUTICALS,INC./RIDGEFIELD-2009-BP-02680NB

PATIENT
  Sex: Male

DRUGS (9)
  1. BI-SIFROL TABLETS [Suspect]
     Indication: PARKINSON'S DISEASE
     Dosage: 1.5MG
     Route: 048
     Dates: start: 20081126
  2. EC-DOPARL [Suspect]
     Indication: PARKINSON'S DISEASE
     Dosage: 600MG
     Route: 048
     Dates: start: 20050215
  3. CABASER [Suspect]
     Indication: PARKINSON'S DISEASE
     Dosage: 3MG
     Route: 048
     Dates: start: 20050215
  4. SELEGILINE HCL [Suspect]
     Indication: PARKINSON'S DISEASE
     Dosage: 2.5MG
     Route: 048
     Dates: start: 20080716
  5. CARDENALIN [Concomitant]
     Indication: HYPERTENSION
     Route: 048
  6. ASPIRIN [Concomitant]
     Indication: ANGINA PECTORIS
     Dosage: 100MG
     Route: 048
     Dates: start: 20070426
  7. PANALDINE [Concomitant]
     Indication: ANGINA PECTORIS
     Dosage: 200MG
     Route: 048
     Dates: start: 20070416
  8. OMEPRAL [Concomitant]
     Indication: GASTRITIS
     Dosage: 10MG
     Route: 048
     Dates: start: 20070416
  9. LIPITOR [Concomitant]
     Indication: ANGINA PECTORIS
     Dosage: 5MG
     Route: 048
     Dates: start: 20070426

REACTIONS (1)
  - RAPID EYE MOVEMENTS SLEEP ABNORMAL [None]
